FAERS Safety Report 21886455 (Version 1)
Quarter: 2023Q1

REPORT INFORMATION
  Report Type: Spontaneous
  Country: TR (occurrence: TR)
  Receive Date: 20230119
  Receipt Date: 20230119
  Transmission Date: 20230418
  Serious: Yes (Other)
  Sender: FDA-Public Use
  Company Number: TR-ELI_LILLY_AND_COMPANY-TR202301004992

PATIENT
  Age: 28 Year
  Sex: Female

DRUGS (1)
  1. OLANZAPINE [Suspect]
     Active Substance: OLANZAPINE
     Indication: Brief psychotic disorder, with postpartum onset
     Dosage: 2.5 MG, DAILY
     Route: 065

REACTIONS (1)
  - Locked-in syndrome [Recovered/Resolved]
